FAERS Safety Report 10253347 (Version 1)
Quarter: 2014Q2

REPORT INFORMATION
  Report Type: Spontaneous
  Country: US (occurrence: US)
  Receive Date: 20140623
  Receipt Date: 20140623
  Transmission Date: 20141212
  Serious: No
  Sender: FDA-Public Use
  Company Number: US-SHIONOGI, INC-2014000377

PATIENT
  Sex: 0

DRUGS (3)
  1. OSPHENA [Suspect]
     Indication: DYSPAREUNIA
     Dosage: UNK
     Route: 065
     Dates: start: 20140124
  2. WARFARIN [Concomitant]
     Indication: THROMBOSIS
     Dosage: UNK
     Route: 065
  3. MELATONIN [Concomitant]
     Indication: INSOMNIA
     Dosage: UNK
     Route: 065

REACTIONS (3)
  - Insomnia [Unknown]
  - Therapeutic response changed [Unknown]
  - Hot flush [Unknown]
